FAERS Safety Report 6721550-9 (Version None)
Quarter: 2010Q2

REPORT INFORMATION
  Report Type: 
  Country: None (occurrence: None)
  Receive Date: 20100430
  Receipt Date: 20090617
  Transmission Date: 20101027
  Serious: Yes (Other)
  Sender: FDA-Public Use
  Company Number: 199141USA

PATIENT
  Sex: Male

DRUGS (2)
  1. PAMIDRONATE DISODIUM 3 MG/ML AND 9 MG/ML (PAMIDRONATE ACID) [Suspect]
     Indication: PROSTATE CANCER
  2. ZOLEDRONIC ACID [Suspect]
     Indication: PROSTATE CANCER

REACTIONS (4)
  - MASTICATION DISORDER [None]
  - OSTEONECROSIS [None]
  - OSTEONECROSIS OF JAW [None]
  - OVERDOSE [None]
